FAERS Safety Report 23929555 (Version 1)
Quarter: 2024Q2

REPORT INFORMATION
  Report Type: Spontaneous
  Country: US (occurrence: US)
  Receive Date: 20240601
  Receipt Date: 20240601
  Transmission Date: 20240717
  Serious: No
  Sender: FDA-Public Use
  Company Number: US-RADIUS HEALTH INC.-2024US002566

PATIENT
  Age: 77 Year
  Sex: Female

DRUGS (4)
  1. TYMLOS [Suspect]
     Active Substance: ABALOPARATIDE
     Indication: Osteoporosis
     Dosage: 40 MICROGRAM, QD
     Dates: start: 20240401, end: 20240402
  2. TYMLOS [Suspect]
     Active Substance: ABALOPARATIDE
     Dosage: 80 MICROGRAM, QD
     Dates: start: 20240404, end: 20240404
  3. TYMLOS [Suspect]
     Active Substance: ABALOPARATIDE
     Dosage: 40 MICROGRAM, QD
     Dates: start: 20240406, end: 20240408
  4. TYMLOS [Suspect]
     Active Substance: ABALOPARATIDE
     Dosage: 40 MICROGRAM, QD
     Dates: start: 20240410, end: 20240411

REACTIONS (4)
  - Diplopia [Recovered/Resolved]
  - Intentional dose omission [Recovered/Resolved]
  - Fatigue [Not Recovered/Not Resolved]
  - Intentional product misuse [Recovered/Resolved]

NARRATIVE: CASE EVENT DATE: 20240401
